FAERS Safety Report 7237971-4 (Version None)
Quarter: 2011Q1

REPORT INFORMATION
  Report Type: 
  Country: None (occurrence: None)
  Receive Date: 20110121
  Receipt Date: 20110114
  Transmission Date: 20110831
  Serious: Yes (Hospitalization)
  Sender: FDA-Public Use
  Company Number: CHNY2011GB00440

PATIENT
  Age: 43 Year
  Sex: Female

DRUGS (2)
  1. ETHANOL [Suspect]
  2. IBUPROFEN [Suspect]
     Dosage: 200 MG, UNK
     Route: 048

REACTIONS (16)
  - MUSCULAR WEAKNESS [None]
  - RENAL FAILURE ACUTE [None]
  - BLOOD CREATININE INCREASED [None]
  - DEPRESSED LEVEL OF CONSCIOUSNESS [None]
  - LIMB INJURY [None]
  - OEDEMA PERIPHERAL [None]
  - NEUROPATHY PERIPHERAL [None]
  - NERVE INJURY [None]
  - OLIGURIA [None]
  - HYPERKALAEMIA [None]
  - HYPOAESTHESIA [None]
  - METABOLIC ACIDOSIS [None]
  - RHABDOMYOLYSIS [None]
  - PNEUMONIA [None]
  - BLOOD UREA INCREASED [None]
  - INTENTIONAL OVERDOSE [None]
